FAERS Safety Report 6358114-5 (Version None)
Quarter: 2009Q3

REPORT INFORMATION
  Report Type: 
  Country: None (occurrence: None)
  Receive Date: 20090916
  Receipt Date: 20090904
  Transmission Date: 20100115
  Serious: Yes (Other)
  Sender: FDA-Public Use
  Company Number: US-AVENTIS-200918104US

PATIENT
  Sex: Female

DRUGS (2)
  1. GLYBURIDE [Suspect]
     Dosage: DOSE: UNK
  2. LIPITOR [Suspect]
     Dosage: DOSE: UNK

REACTIONS (4)
  - ANKLE FRACTURE [None]
  - ARTHRALGIA [None]
  - FALL [None]
  - MYALGIA [None]
